FAERS Safety Report 9772444 (Version 1)
Quarter: 2013Q4

REPORT INFORMATION
  Report Type: Spontaneous
  Country: US (occurrence: US)
  Receive Date: 20131219
  Receipt Date: 20131219
  Transmission Date: 20140711
  Serious: Yes (Other)
  Sender: FDA-Public Use
  Company Number: US-UCBSA-106417

PATIENT
  Age: 24 Year
  Sex: Male

DRUGS (6)
  1. CERTOLIZUMAB PEGOL [Suspect]
     Indication: CROHN^S DISEASE
  2. AZATHIOPRINE [Suspect]
     Indication: CROHN^S DISEASE
  3. METHOTREXATE [Suspect]
     Indication: CROHN^S DISEASE
  4. INFLIXIMAB [Suspect]
     Indication: CROHN^S DISEASE
  5. ADALIMUMAB [Suspect]
     Indication: CROHN^S DISEASE
  6. NATALIZUMAB [Suspect]
     Indication: CROHN^S DISEASE

REACTIONS (2)
  - Hepatocellular carcinoma [Unknown]
  - Drug effect incomplete [Unknown]
